FAERS Safety Report 16338885 (Version 7)
Quarter: 2019Q3

REPORT INFORMATION
  Report Type: Report from Study
  Country: US (occurrence: US)
  Receive Date: 20190521
  Receipt Date: 20190719
  Transmission Date: 20191004
  Serious: Yes (Hospitalization, Congenital Anomaly, Other)
  Sender: FDA-Public Use
  Company Number: US-GILEAD-2019-0401228

PATIENT
  Age: 14 Year
  Sex: Female
  Weight: 35.2 kg

DRUGS (8)
  1. TREPROSTINIL. [Concomitant]
     Active Substance: TREPROSTINIL
  2. TADALAFIL. [Concomitant]
     Active Substance: TADALAFIL
  3. COUMADIN [Concomitant]
     Active Substance: WARFARIN SODIUM
  4. WARFARIN [Concomitant]
     Active Substance: WARFARIN
  5. VITAMINS NOS [Concomitant]
     Active Substance: VITAMINS
  6. AMBRISENTAN [Suspect]
     Active Substance: AMBRISENTAN
     Indication: PULMONARY ARTERIAL HYPERTENSION
     Dosage: 5 MG, QD
     Route: 048
     Dates: start: 20190403
  7. REMODULIN [Suspect]
     Active Substance: TREPROSTINIL
     Indication: PULMONARY HYPERTENSION
     Dosage: UNK, CONTINUOUS
     Route: 058
  8. DIGOXIN. [Concomitant]
     Active Substance: DIGOXIN

REACTIONS (21)
  - Infusion site pain [Not Recovered/Not Resolved]
  - Cardiac failure [Unknown]
  - Infection [Unknown]
  - Oxygen saturation decreased [Not Recovered/Not Resolved]
  - Transplant evaluation [Unknown]
  - Tachycardia [Recovered/Resolved]
  - Infusion site swelling [Recovered/Resolved]
  - Unevaluable event [Unknown]
  - Dyspnoea [Recovered/Resolved]
  - Off label use [Not Recovered/Not Resolved]
  - Pericardial effusion [Not Recovered/Not Resolved]
  - Infusion site warmth [Recovered/Resolved]
  - Injection site erythema [Recovered/Resolved]
  - Hypoxia [Unknown]
  - Oxygen saturation decreased [Unknown]
  - Chest pain [Recovered/Resolved]
  - Infusion site infection [Not Recovered/Not Resolved]
  - Sepsis [Unknown]
  - Dyspnoea [Unknown]
  - Nausea [Recovered/Resolved]
  - Influenza [Recovered/Resolved]

NARRATIVE: CASE EVENT DATE: 20190403
